FAERS Safety Report 5994099-9 (Version None)
Quarter: 2008Q4

REPORT INFORMATION
  Report Type: 
  Country: None (occurrence: None)
  Receive Date: 20081212
  Receipt Date: 20080922
  Transmission Date: 20090506
  Serious: Yes (Other)
  Sender: FDA-Public Use
  Company Number: JP-ASTRAZENECA-2008AP09505

PATIENT
  Weight: 14.3 kg

DRUGS (1)
  1. MEROPENEM [Suspect]
     Route: 042

REACTIONS (2)
  - HYPERNATRAEMIA [None]
  - RENAL IMPAIRMENT [None]
